FAERS Safety Report 8578957-7 (Version None)
Quarter: 2012Q3

REPORT INFORMATION
  Report Type: 
  Country: None (occurrence: None)
  Receive Date: 20120808
  Receipt Date: 20120723
  Transmission Date: 20120928
  Serious: No
  Sender: FDA-Public Use
  Company Number: US-ASTRAZENECA-2012SE52099

PATIENT
  Age: 69 Year
  Sex: Male
  Weight: 74.8 kg

DRUGS (3)
  1. BLOOD THINNER [Concomitant]
  2. SEROQUEL XR [Suspect]
     Indication: BIPOLAR DISORDER
     Route: 048
  3. CHOLESTEROL MEDICATION [Concomitant]

REACTIONS (5)
  - DRUG DOSE OMISSION [None]
  - INSOMNIA [None]
  - SLEEP DISORDER [None]
  - MALAISE [None]
  - PANIC ATTACK [None]
